FAERS Safety Report 7715704-2 (Version None)
Quarter: 2011Q3

REPORT INFORMATION
  Report Type: 
  Country: None (occurrence: None)
  Receive Date: 20110829
  Receipt Date: 20110819
  Transmission Date: 20111222
  Serious: Yes (Hospitalization)
  Sender: FDA-Public Use
  Company Number: SE-PFIZER INC-2011150794

PATIENT
  Age: 64 Year
  Sex: Male
  Weight: 99 kg

DRUGS (12)
  1. OXASCAND [Concomitant]
     Indication: MENTAL DISORDER
     Dosage: 10 MG, AS NEEDED
  2. NEBIDO [Concomitant]
     Indication: FOLLICLE-STIMULATING HORMONE DEFICIENCY
  3. SOMATROPIN [Suspect]
     Dosage: 0.5 MG, 1X/DAY
     Dates: start: 19990519
  4. LERGIGAN [Concomitant]
     Indication: ANXIETY
     Dosage: 50 MG, 1X/DAY
     Dates: start: 20090325
  5. LYRICA [Concomitant]
     Indication: ANXIETY
     Dosage: 600 MG, 1X/DAY
     Route: 048
     Dates: start: 20090326
  6. OMEPRAZOLE [Concomitant]
     Indication: GASTRITIS
     Dosage: 20 MG, 1X/DAY
     Dates: start: 20060801
  7. SYMBICORT [Concomitant]
     Indication: ASTHMA
     Dosage: 160 UG, 2X/DAY
     Dates: start: 20060601
  8. CYMBALTA [Concomitant]
     Indication: DYSTHYMIC DISORDER
     Dosage: 60 MG, 1X/DAY
     Dates: start: 20090325
  9. WARFARIN SODIUM [Concomitant]
     Indication: EMBOLISM VENOUS
     Dosage: 2.5 MG, 1X/DAY
     Route: 048
     Dates: start: 20090218
  10. NEBIDO [Concomitant]
     Indication: HYPOGONADISM MALE
     Dosage: 1000 MG, UNK
     Dates: start: 20060501
  11. NEBIDO [Concomitant]
     Indication: LUTEINISING HORMONE DEFICIENCY
  12. AMLODIPINE [Concomitant]
     Indication: ESSENTIAL HYPERTENSION
     Dosage: 5 MG, 1X/DAY
     Route: 048
     Dates: start: 20090218

REACTIONS (1)
  - ASCITES [None]
